FAERS Safety Report 5347396-4 (Version None)
Quarter: 2007Q2

REPORT INFORMATION
  Report Type: 
  Country: None (occurrence: None)
  Receive Date: 20070606
  Receipt Date: 20070530
  Transmission Date: 20071010
  Serious: Yes (Other)
  Sender: FDA-Public Use
  Company Number: JP-BAYER-200712995GDS

PATIENT
  Age: 58 Year
  Sex: Female

DRUGS (1)
  1. ASPIRIN [Suspect]
     Indication: DRUG USE FOR UNKNOWN INDICATION
     Dosage: AS USED: 81 MG
     Route: 065

REACTIONS (2)
  - LACUNAR INFARCTION [None]
  - THALAMUS HAEMORRHAGE [None]
